FAERS Safety Report 18966134 (Version 1)
Quarter: 2021Q1

REPORT INFORMATION
  Report Type: Other
  Country: US (occurrence: US)
  Receive Date: 20210303
  Receipt Date: 20210303
  Transmission Date: 20210420
  Serious: Yes (Hospitalization, Other)
  Sender: FDA-Public Use
  Company Number: US-DEXPHARM-20210275

PATIENT
  Age: 65 Year
  Sex: Male

DRUGS (6)
  1. ASPIRIN. [Suspect]
     Active Substance: ASPIRIN
  2. MELPHALAN. [Suspect]
     Active Substance: MELPHALAN
  3. LENALIDOMIDE [Suspect]
     Active Substance: LENALIDOMIDE
  4. LENALIDOMIDE [Suspect]
     Active Substance: LENALIDOMIDE
  5. BORTEZOMIB. [Suspect]
     Active Substance: BORTEZOMIB
  6. DEXAMETHASONE. [Suspect]
     Active Substance: DEXAMETHASONE

REACTIONS (2)
  - Drug interaction [Unknown]
  - Autonomic nervous system imbalance [Unknown]
